FAERS Safety Report 8119622-X (Version None)
Quarter: 2012Q1

REPORT INFORMATION
  Report Type: 
  Country: None (occurrence: None)
  Receive Date: 20120207
  Receipt Date: 20120202
  Transmission Date: 20120608
  Serious: Yes (Hospitalization)
  Sender: FDA-Public Use
  Company Number: PHHY2012JP009519

PATIENT

DRUGS (4)
  1. MEDROL [Concomitant]
     Dosage: UNK UKN, UNK
     Route: 048
  2. NEORAL [Suspect]
     Indication: RENAL TRANSPLANT
     Route: 048
  3. MYCOPHENOLATE MOFETIL (CELLCEPT) [Concomitant]
     Dosage: UNK UKN, UNK
     Route: 048
  4. MEDROL [Concomitant]
     Route: 048

REACTIONS (1)
  - CARDIAC DISORDER [None]
